FAERS Safety Report 14281656 (Version 1)
Quarter: 2017Q4

REPORT INFORMATION
  Report Type: Spontaneous
  Country: US (occurrence: US)
  Receive Date: 20171213
  Receipt Date: 20171213
  Transmission Date: 20180321
  Serious: No
  Sender: FDA-Public Use
  Company Number: US-009507513-1711USA005520

PATIENT
  Age: 19 Year
  Sex: Female
  Weight: 81.18 kg

DRUGS (1)
  1. NEXPLANON [Suspect]
     Active Substance: ETONOGESTREL
     Dosage: 1 DF, LEFT ARM
     Route: 059
     Dates: start: 20140627

REACTIONS (5)
  - Migration of implanted drug [Not Recovered/Not Resolved]
  - Complication associated with device [Recovered/Resolved]
  - Device deployment issue [Not Recovered/Not Resolved]
  - Incorrect drug administration duration [Unknown]
  - No adverse event [Unknown]

NARRATIVE: CASE EVENT DATE: 20140627
